FAERS Safety Report 24155800 (Version 1)
Quarter: 2024Q3

REPORT INFORMATION
  Report Type: Spontaneous
  Country: IN (occurrence: IN)
  Receive Date: 20240731
  Receipt Date: 20240731
  Transmission Date: 20241017
  Serious: Yes (Other)
  Sender: RANBAXY
  Company Number: IN-SUN PHARMACEUTICAL INDUSTRIES LTD-2024R1-459656

PATIENT
  Age: 33 Year
  Sex: Female

DRUGS (9)
  1. AMITRIPTYLINE [Suspect]
     Active Substance: AMITRIPTYLINE
     Indication: Migraine with aura
     Dosage: UNK
     Route: 065
  2. AMITRIPTYLINE [Suspect]
     Active Substance: AMITRIPTYLINE
     Dosage: 75 MILLIGRAM, DAILY
     Route: 065
  3. DIVALPROEX SODIUM [Suspect]
     Active Substance: DIVALPROEX SODIUM
     Indication: Migraine with aura
     Route: 065
  4. DIVALPROEX SODIUM [Suspect]
     Active Substance: DIVALPROEX SODIUM
     Indication: Prophylaxis
     Dosage: 1000 MILLIGRAM, DAILY
     Route: 065
  5. DOMPERIDONE\NAPROXEN [Suspect]
     Active Substance: DOMPERIDONE\NAPROXEN
     Indication: Migraine with aura
     Dosage: 500MG + 10 MG
     Route: 065
  6. PROPRANOLOL [Suspect]
     Active Substance: PROPRANOLOL HYDROCHLORIDE
     Indication: Migraine with aura
     Dosage: UNK
     Route: 065
  7. PROPRANOLOL [Suspect]
     Active Substance: PROPRANOLOL HYDROCHLORIDE
     Indication: Prophylaxis
     Dosage: 80 MILLIGRAM, DAILY
     Route: 065
  8. FLUNARIZINE [Suspect]
     Active Substance: FLUNARIZINE
     Indication: Migraine with aura
     Route: 065
  9. FLUNARIZINE [Suspect]
     Active Substance: FLUNARIZINE
     Indication: Prophylaxis
     Dosage: 10 MILLIGRAM, DAILY
     Route: 065

REACTIONS (2)
  - Drug resistance [Unknown]
  - Therapeutic response decreased [Unknown]
